FAERS Safety Report 6775872-6 (Version None)
Quarter: 2010Q2

REPORT INFORMATION
  Report Type: 
  Country: None (occurrence: None)
  Receive Date: 20100617
  Receipt Date: 20100607
  Transmission Date: 20101027
  Serious: Yes (Hospitalization, Other)
  Sender: FDA-Public Use
  Company Number: ZA-ELI_LILLY_AND_COMPANY-ZA201006004102

PATIENT
  Sex: Male

DRUGS (4)
  1. ALIMTA [Suspect]
     Dosage: UNK, UNKNOWN
     Route: 065
  2. FOLIC ACID [Concomitant]
     Dosage: UNK, UNKNOWN
     Route: 065
  3. DEXAMETHASONE [Concomitant]
     Dosage: UNK, UNKNOWN
     Route: 065
  4. VITAMIN B-12 [Concomitant]
     Dosage: UNK, UNKNOWN
     Route: 065

REACTIONS (1)
  - PERICARDIAL EFFUSION [None]
